FAERS Safety Report 9592105 (Version 1)
Quarter: 2013Q4

REPORT INFORMATION
  Report Type: Spontaneous
  Country: US (occurrence: US)
  Receive Date: 20131004
  Receipt Date: 20131004
  Transmission Date: 20140711
  Serious: No
  Sender: FDA-Public Use
  Company Number: US-BIOGENIDEC-2013BI094038

PATIENT
  Age: 35 Year
  Sex: Female

DRUGS (1)
  1. TYSABRI [Suspect]
     Indication: MULTIPLE SCLEROSIS
     Route: 042
     Dates: start: 20120911

REACTIONS (4)
  - Memory impairment [Recovered/Resolved]
  - Muscle spasms [Recovered/Resolved]
  - Influenza like illness [Recovered/Resolved]
  - Dizziness [Recovered/Resolved]
